FAERS Safety Report 9909029 (Version 1)
Quarter: 2014Q1

REPORT INFORMATION
  Report Type: Report from Study
  Country: CA (occurrence: CA)
  Receive Date: 20140219
  Receipt Date: 20140219
  Transmission Date: 20141002
  Serious: Yes (Other)
  Sender: FDA-Public Use
  Company Number: CA-JNJFOC-20140210558

PATIENT
  Sex: Female
  Weight: 75 kg

DRUGS (4)
  1. REMICADE [Suspect]
     Indication: CROHN^S DISEASE
     Route: 042
     Dates: start: 20121129
  2. BENADRYL [Concomitant]
     Route: 048
  3. TYLENOL [Concomitant]
     Route: 048
  4. SOLU MEDROL [Concomitant]
     Route: 065

REACTIONS (1)
  - Jaw cyst [Unknown]
